FAERS Safety Report 4700312-8 (Version None)
Quarter: 2005Q2

REPORT INFORMATION
  Report Type: 
  Country: None (occurrence: None)
  Receive Date: 20050627
  Receipt Date: 20040323
  Transmission Date: 20051028
  Serious: Yes (Other)
  Sender: FDA-Public Use
  Company Number: PHHO2004BR18751

PATIENT
  Age: 34 Year
  Sex: Female
  Weight: 68 kg

DRUGS (1)
  1. DIOVAN [Suspect]
     Dosage: 80 MG DAILY
     Route: 048
     Dates: start: 19970603

REACTIONS (1)
  - HYPERTENSIVE CRISIS [None]
